FAERS Safety Report 14772093 (Version 2)
Quarter: 2018Q2

REPORT INFORMATION
  Report Type: Spontaneous
  Country: IT (occurrence: IT)
  Receive Date: 20180417
  Receipt Date: 20180425
  Transmission Date: 20180711
  Serious: Yes (Other)
  Sender: FDA-Public Use
  Company Number: IT-ABBVIE-18K-083-2273048-00

PATIENT
  Age: 42 Year
  Sex: Female
  Weight: 90 kg

DRUGS (2)
  1. CARDIOASPIRIN [Concomitant]
     Active Substance: ASPIRIN
     Indication: ANGIOSCLEROSIS
  2. HUMIRA [Suspect]
     Active Substance: ADALIMUMAB
     Indication: PSORIASIS
     Route: 058
     Dates: start: 20160301, end: 20180112

REACTIONS (2)
  - Drug ineffective [Unknown]
  - Livedo reticularis [Unknown]

NARRATIVE: CASE EVENT DATE: 20180129
